FAERS Safety Report 23330627 (Version 1)
Quarter: 2023Q4

REPORT INFORMATION
  Report Type: Spontaneous
  Country: ES (occurrence: None)
  Receive Date: 20231222
  Receipt Date: 20231222
  Transmission Date: 20240109
  Serious: Yes (Other)
  Sender: FDA-Public Use
  Company Number: ES-ROCHE-3477888

PATIENT
  Age: 51 Year
  Sex: Male

DRUGS (5)
  1. MOSUNETUZUMAB [Suspect]
     Active Substance: MOSUNETUZUMAB
     Indication: Follicular lymphoma
     Dosage: 1ST DOSE
     Route: 065
     Dates: start: 20230421
  2. MOSUNETUZUMAB [Suspect]
     Active Substance: MOSUNETUZUMAB
     Dosage: 2ND DOSE
     Route: 065
     Dates: start: 20230428
  3. MOSUNETUZUMAB [Suspect]
     Active Substance: MOSUNETUZUMAB
     Dosage: 3RD DOSE
     Route: 065
     Dates: start: 20230505
  4. MOSUNETUZUMAB [Suspect]
     Active Substance: MOSUNETUZUMAB
     Dosage: CYCLE 2
     Route: 065
     Dates: start: 20230512
  5. MOSUNETUZUMAB [Suspect]
     Active Substance: MOSUNETUZUMAB
     Dosage: CYCLE 3
     Route: 065
     Dates: start: 20230613

REACTIONS (2)
  - Cytokine release syndrome [Recovered/Resolved]
  - Herpes ophthalmic [Recovered/Resolved]
